FAERS Safety Report 8694551 (Version 2)
Quarter: 2013Q4

REPORT INFORMATION
  Report Type: Spontaneous
  Country: GB (occurrence: GB)
  Receive Date: 20120731
  Receipt Date: 20131031
  Transmission Date: 20140711
  Serious: Yes (Hospitalization)
  Sender: FDA-Public Use
  Company Number: GB-009507513-2012SP032124

PATIENT
  Age: 50 Year
  Sex: Female

DRUGS (2)
  1. MIRTAZAPINE [Suspect]
     Dosage: 1050 MG, UNK
  2. SERTRALINE HYDROCHLORIDE [Concomitant]
     Dosage: 2800 MG, UNK

REACTIONS (1)
  - Overdose [Unknown]
